FAERS Safety Report 14328577 (Version 2)
Quarter: 2018Q1

REPORT INFORMATION
  Report Type: Spontaneous
  Country: US (occurrence: US)
  Receive Date: 20171227
  Receipt Date: 20180102
  Transmission Date: 20180509
  Serious: No
  Sender: FDA-Public Use
  Company Number: US-BAYER-2017-245683

PATIENT
  Age: 66 Year
  Sex: Male

DRUGS (2)
  1. LEVODOPA-CARBIDOPA [Concomitant]
     Active Substance: CARBIDOPA\LEVODOPA
  2. MIRALAX [Suspect]
     Active Substance: POLYETHYLENE GLYCOL 3350
     Indication: GASTROINTESTINAL DISORDER
     Dosage: 1 DF, QD
     Route: 048
     Dates: start: 2016

REACTIONS (5)
  - Product use issue [Unknown]
  - Poor quality drug administered [Unknown]
  - Product solubility abnormal [None]
  - Circumstance or information capable of leading to medication error [Unknown]
  - Product odour abnormal [None]
